FAERS Safety Report 7075331-X (Version None)
Quarter: 2010Q4

REPORT INFORMATION
  Report Type: 
  Country: None (occurrence: None)
  Receive Date: 20101030
  Receipt Date: 20100831
  Transmission Date: 20110411
  Serious: No
  Sender: FDA-Public Use
  Company Number: US-WYE-H17276010

PATIENT
  Sex: Female
  Weight: 69.01 kg

DRUGS (3)
  1. PRISTIQ [Suspect]
     Indication: BIPOLAR DISORDER
     Route: 048
     Dates: start: 20100722
  2. BUSPIRONE HCL [Concomitant]
  3. LAMOTRIGINE [Concomitant]

REACTIONS (2)
  - MIGRAINE [None]
  - NECK PAIN [None]
